FAERS Safety Report 5800854-8 (Version None)
Quarter: 2008Q3

REPORT INFORMATION
  Report Type: 
  Country: None (occurrence: None)
  Receive Date: 20080703
  Receipt Date: 20080623
  Transmission Date: 20090109
  Serious: Yes (Life-Threatening, Other)
  Sender: FDA-Public Use
  Company Number: ES-ABBOTT-08P-144-0459738-00

PATIENT
  Sex: Male
  Weight: 62 kg

DRUGS (10)
  1. RITONAVIR SOFT GELATIN CAPSULES [Suspect]
     Indication: HIV INFECTION
     Route: 048
     Dates: start: 20080218, end: 20080224
  2. RALTEGRAVIR [Interacting]
     Indication: HIV INFECTION
     Route: 048
     Dates: start: 20080218, end: 20080424
  3. RALTEGRAVIR [Interacting]
     Route: 048
     Dates: start: 20080424
  4. DARUNAVIR [Interacting]
     Indication: HIV INFECTION
     Route: 048
     Dates: start: 20080218
  5. MARAVIROC [Suspect]
     Indication: HIV INFECTION
     Route: 048
     Dates: start: 20080218
  6. CLONAZEPAM [Concomitant]
     Indication: DRUG USE FOR UNKNOWN INDICATION
     Route: 048
     Dates: start: 19970404
  7. GABAPENTIN [Concomitant]
     Indication: DRUG USE FOR UNKNOWN INDICATION
     Route: 048
     Dates: start: 19970521
  8. MORPHINE [Concomitant]
     Indication: DRUG USE FOR UNKNOWN INDICATION
     Route: 048
     Dates: start: 19970716
  9. LEUCOVORIN CALCIUM [Concomitant]
     Indication: DRUG USE FOR UNKNOWN INDICATION
     Route: 048
     Dates: start: 19971029
  10. OMEPRAZOLE SODIUM [Concomitant]
     Indication: DRUG USE FOR UNKNOWN INDICATION
     Route: 048
     Dates: start: 20020530

REACTIONS (3)
  - ASCITES [None]
  - DRUG INTERACTION [None]
  - HEPATIC FAILURE [None]
